FAERS Safety Report 8178347-5 (Version None)
Quarter: 2012Q1

REPORT INFORMATION
  Report Type: 
  Country: None (occurrence: None)
  Receive Date: 20120126
  Receipt Date: 20111205
  Transmission Date: 20120608
  Serious: No
  Sender: FDA-Public Use
  Company Number: PHEH2011US03911

PATIENT
  Age: 6 Year
  Sex: Male

DRUGS (3)
  1. LYSINE [Concomitant]
  2. TRILEPTAL [Concomitant]
  3. AFINITOR [Suspect]
     Indication: ASTROCYTOMA
     Dosage: 7.5 MG, DAILY, ORAL
     Route: 048
     Dates: start: 20110617

REACTIONS (6)
  - COUGH [None]
  - RASH [None]
  - NASOPHARYNGITIS [None]
  - ABNORMAL DREAMS [None]
  - SLEEP DISORDER [None]
  - DIARRHOEA [None]
